FAERS Safety Report 18364134 (Version 2)
Quarter: 2020Q4

REPORT INFORMATION
  Report Type: Spontaneous
  Country: US (occurrence: US)
  Receive Date: 20201009
  Receipt Date: 20201201
  Transmission Date: 20210114
  Serious: No
  Sender: FDA-Public Use
  Company Number: NVSC2020US263729

PATIENT
  Sex: Male

DRUGS (1)
  1. RIVASTIGMINE. [Suspect]
     Active Substance: RIVASTIGMINE
     Indication: PRODUCT USED FOR UNKNOWN INDICATION
     Dosage: 13.3 MG, Q24H, 30 TTSM
     Route: 062

REACTIONS (3)
  - Hyperhidrosis [Unknown]
  - Product adhesion issue [Unknown]
  - Product dose omission issue [Unknown]
